FAERS Safety Report 7696176 (Version 3)
Quarter: 2014Q1

REPORT INFORMATION
  Report Type: Report from Study
  Country: CA (occurrence: CA)
  Receive Date: 20101207
  Receipt Date: 20140129
  Transmission Date: 20141002
  Serious: Yes (Other)
  Sender: FDA-Public Use
  Company Number: PHHY2010CA80205

PATIENT
  Age: 57 Year
  Sex: Female

DRUGS (4)
  1. ACLASTA [Suspect]
     Indication: OSTEOPOROSIS
     Dosage: UNK UKN, UNK
     Route: 041
     Dates: start: 20091128
  2. ACLASTA [Suspect]
     Dosage: UNK UKN, UNK
     Route: 041
     Dates: start: 20101122
  3. ACLASTA [Suspect]
     Dosage: UNK UKN, UNK
     Route: 041
     Dates: start: 20111122
  4. ACLASTA [Suspect]
     Dosage: UNK UKN, UNK
     Route: 041
     Dates: start: 20121123

REACTIONS (2)
  - Blood urine present [Recovered/Resolved]
  - Blood calcium increased [Unknown]
